FAERS Safety Report 7468970-5 (Version None)
Quarter: 2011Q2

REPORT INFORMATION
  Report Type: 
  Country: None (occurrence: None)
  Receive Date: 20110429
  Receipt Date: 20110414
  Transmission Date: 20111010
  Serious: Yes (Death)
  Sender: FDA-Public Use
  Company Number: AUR-APL-2011-01316

PATIENT
  Age: 53 Year
  Sex: Female

DRUGS (4)
  1. HYDROMORPHONE HCL [Suspect]
  2. SERTRALINE HYDROCHLORIDE [Suspect]
  3. ACETAMINOPHEN [Suspect]
  4. LAMOTRIGINE [Suspect]

REACTIONS (2)
  - TOXICITY TO VARIOUS AGENTS [None]
  - ALCOHOL POISONING [None]
